FAERS Safety Report 9492751 (Version 1)
Quarter: 2013Q3

REPORT INFORMATION
  Report Type: Spontaneous
  Country: US (occurrence: US)
  Receive Date: 20130830
  Receipt Date: 20130830
  Transmission Date: 20140515
  Serious: Yes (Hospitalization)
  Sender: FDA-Public Use
  Company Number: US-GLAXOSMITHKLINE-A1039136A

PATIENT
  Age: 67 Year
  Sex: Female

DRUGS (20)
  1. ADVAIR [Suspect]
     Indication: ASTHMA
     Dosage: 1PUFF TWICE PER DAY
     Route: 055
     Dates: start: 201210, end: 20130822
  2. LORAZEPAM [Concomitant]
  3. CYMBALTA [Concomitant]
  4. HYDROCODONE [Concomitant]
  5. ROBAXIN [Concomitant]
  6. STOOL SOFTENER [Concomitant]
  7. NUVIGIL [Concomitant]
  8. RANITIDINE [Concomitant]
  9. PREMARIN [Concomitant]
  10. METHADONE [Concomitant]
  11. BENICAR [Concomitant]
  12. LASIX [Concomitant]
  13. KLOR-CON [Concomitant]
  14. CEPHALEXIN [Concomitant]
  15. ERYTHROMYCIN EYE DROPS [Concomitant]
  16. LANTUS [Concomitant]
  17. NOVOLOG [Concomitant]
  18. OXYGEN [Concomitant]
  19. PROAIR HFA [Concomitant]
  20. RELPAX [Concomitant]

REACTIONS (18)
  - Upper respiratory tract infection [Recovering/Resolving]
  - Cough [Recovering/Resolving]
  - Secretion discharge [Recovering/Resolving]
  - Rhinorrhoea [Recovering/Resolving]
  - Eye infection [Recovering/Resolving]
  - Ear infection [Recovering/Resolving]
  - Dizziness [Recovering/Resolving]
  - Dysphonia [Recovering/Resolving]
  - Hypertension [Recovering/Resolving]
  - Increased upper airway secretion [Recovering/Resolving]
  - Retching [Recovering/Resolving]
  - Vomiting [Recovering/Resolving]
  - Pneumonia [Recovering/Resolving]
  - White blood cell count increased [Recovering/Resolving]
  - Agitation [Recovering/Resolving]
  - Nervousness [Recovering/Resolving]
  - Logorrhoea [Recovering/Resolving]
  - Sinusitis [Recovered/Resolved]
